FAERS Safety Report 17777725 (Version 1)
Quarter: 2020Q2

REPORT INFORMATION
  Report Type: Spontaneous
  Country: US (occurrence: US)
  Receive Date: 20200513
  Receipt Date: 20200513
  Transmission Date: 20200714
  Serious: Yes (Life-Threatening, Hospitalization)
  Sender: FDA-Public Use
  Company Number: US-STRIDES ARCOLAB LIMITED-2020SP005334

PATIENT
  Age: 22 Year
  Sex: Female

DRUGS (1)
  1. AMLODIPINE [Suspect]
     Active Substance: AMLODIPINE BESYLATE
     Indication: PRODUCT USED FOR UNKNOWN INDICATION
     Dosage: UNK
     Route: 048

REACTIONS (17)
  - Loss of consciousness [Recovered/Resolved]
  - Arrhythmia [Recovered/Resolved]
  - Atrioventricular block complete [Recovered/Resolved]
  - Anuria [Recovered/Resolved]
  - Vomiting [Recovered/Resolved]
  - Hypotension [Recovered/Resolved]
  - Toxicity to various agents [Unknown]
  - Respiratory failure [Recovered/Resolved]
  - Acidosis [Recovered/Resolved]
  - Haemodynamic instability [Recovered/Resolved]
  - Acute kidney injury [Recovered/Resolved]
  - Overdose [Unknown]
  - Disorientation [Recovered/Resolved]
  - Chest discomfort [Recovered/Resolved]
  - Suicide attempt [Unknown]
  - Nausea [Recovered/Resolved]
  - Peripheral ischaemia [Recovered/Resolved]
